FAERS Safety Report 9644659 (Version 2)
Quarter: 2013Q4

REPORT INFORMATION
  Report Type: Spontaneous
  Country: US (occurrence: US)
  Receive Date: 20131025
  Receipt Date: 20131028
  Transmission Date: 20140711
  Serious: Yes (Hospitalization, Other)
  Sender: FDA-Public Use
  Company Number: US-JNJFOC-20131010586

PATIENT
  Sex: Female

DRUGS (3)
  1. LEVAQUIN [Suspect]
     Indication: PNEUMONIA
     Dosage: 10 DAYS
     Route: 048
     Dates: start: 2000, end: 2000
  2. COUMADIN [Concomitant]
     Indication: THROMBOSIS
     Route: 048
     Dates: start: 1996, end: 1996
  3. COUMADIN [Concomitant]
     Indication: THROMBOSIS
     Route: 048
     Dates: start: 2002

REACTIONS (6)
  - Wrist fracture [Recovered/Resolved with Sequelae]
  - Complex regional pain syndrome [Not Recovered/Not Resolved]
  - Fracture malunion [Not Recovered/Not Resolved]
  - Hypothyroidism [Unknown]
  - Disability [Not Recovered/Not Resolved]
  - Impaired work ability [Not Recovered/Not Resolved]
